FAERS Safety Report 5942133-4 (Version None)
Quarter: 2008Q4

REPORT INFORMATION
  Report Type: 
  Country: None (occurrence: None)
  Receive Date: 20081104
  Receipt Date: 20081104
  Transmission Date: 20090506
  Serious: No
  Sender: FDA-Public Use
  Company Number: None

PATIENT
  Age: 59 Year
  Sex: Male
  Weight: 86 kg

DRUGS (1)
  1. PACLITAXEL [Suspect]
     Dosage: 420 MG ONCE IV
     Route: 042
     Dates: start: 20071221, end: 20080211

REACTIONS (3)
  - BACK PAIN [None]
  - DYSPNOEA [None]
  - FLUSHING [None]
